FAERS Safety Report 7469427 (Version 3)
Quarter: 2013Q3

REPORT INFORMATION
  Report Type: Spontaneous
  Country: JP (occurrence: None)
  Receive Date: 20100630
  Receipt Date: 20130715
  Transmission Date: 20140515
  Serious: Yes (Hospitalization, Other)
  Sender: FDA-Public Use
  Company Number: 2010JP003595

PATIENT
  Age: 15 Year
  Sex: Female
  Weight: 63.2 kg

DRUGS (28)
  1. PROGRAF [Suspect]
     Indication: LUPUS NEPHRITIS
     Route: 048
     Dates: start: 20080520, end: 20111120
  2. PREDNISOLONE [Suspect]
     Indication: LUPUS NEPHRITIS
     Dosage: 40 MG, ORAL; 36 MG, ORAL; 12 MG, ORAL; 11 MG, ORAL; 10 MG, ORAL; 9 MG, ORAL
     Route: 048
     Dates: end: 20080520
  3. PREDNISOLONE [Suspect]
     Indication: PYREXIA
     Dosage: 40 MG, ORAL; 36 MG, ORAL; 12 MG, ORAL; 11 MG, ORAL; 10 MG, ORAL; 9 MG, ORAL
     Route: 048
     Dates: end: 20080520
  4. METHYLPREDNISOLONE [Suspect]
     Indication: LUPUS NEPHRITIS
     Route: 048
     Dates: start: 20080528, end: 20080603
  5. MUCOSTA (REBAMIPIDE) [Concomitant]
  6. ONEALFA (ALFACALCIDOL) [Concomitant]
  7. WARFARIN SODIUM [Concomitant]
  8. LORAZEPAM [Concomitant]
  9. BACTRIM [Concomitant]
  10. AMITRIPTYLINE HYDROCHLORIDE [Concomitant]
  11. LOSARTAN POTASSIUM [Concomitant]
  12. CRESTOR [Concomitant]
  13. RIZE (CLOTIAZEPAM) [Concomitant]
  14. PARIET (RABEPRAZOLE SODIUM) [Concomitant]
     Route: 048
     Dates: start: 20121022
  15. SELBEX (TEPRENONE) [Concomitant]
  16. BENET (RISEDRONATE SODIUM) TABLET [Concomitant]
  17. TRYPTANOL (AMITRIPTYLINE HYDROCHLORIDE) [Concomitant]
  18. LIPOVAS (SIMVASTATIN) [Concomitant]
  19. FOSAMAC (ALENDRONATE SODIUM) [Concomitant]
  20. IMURAN (AZATHIOPRINE) [Concomitant]
  21. VOLTAREN (DICLOFENAC SODIUM) [Concomitant]
  22. VOLTAREN /00372302/ (DICLOFENAC SODIUM) [Concomitant]
  23. RIVOTRIL (CLONAZEPAM) [Concomitant]
  24. LYRICA (PREGABALIN) [Concomitant]
  25. GASLON N (IRSOGLADINE MALEATE) [Concomitant]
  26. LOXONIN (LOXOPROFEN SODIUM) [Concomitant]
  27. FERROMIA /00023502/ (FERROUS SODIUM CITRATE) [Concomitant]
  28. ENDOXAN /00021102/ (CYCLOPHOSPHAMIDE MONOHYDRATE) [Concomitant]

REACTIONS (7)
  - Osteonecrosis [None]
  - Essential tremor [None]
  - Condition aggravated [None]
  - Blood immunoglobulin G increased [None]
  - Pyrexia [None]
  - Hypoaesthesia [None]
  - Nausea [None]
